FAERS Safety Report 7028172-3 (Version None)
Quarter: 2010Q3

REPORT INFORMATION
  Report Type: 
  Country: None (occurrence: None)
  Receive Date: 20100930
  Receipt Date: 20100921
  Transmission Date: 20110219
  Serious: Yes (Hospitalization)
  Sender: FDA-Public Use
  Company Number: 2010US003871

PATIENT
  Age: 48 Year
  Sex: Male
  Weight: 73 kg

DRUGS (5)
  1. PROGRAF [Suspect]
     Indication: HEART TRANSPLANT
     Dosage: 3 MG, UID/QD, ORAL
     Route: 048
     Dates: start: 20031023
  2. PREDNISONE [Concomitant]
  3. LASIX [Concomitant]
  4. CELLCEPT [Concomitant]
  5. METOPROLOL SUCCINATE [Concomitant]

REACTIONS (4)
  - HEART TRANSPLANT REJECTION [None]
  - LOSS OF EMPLOYMENT [None]
  - OEDEMA PERIPHERAL [None]
  - ROAD TRAFFIC ACCIDENT [None]
